FAERS Safety Report 19294386 (Version 1)
Quarter: 2021Q2

REPORT INFORMATION
  Report Type: Spontaneous
  Country: US (occurrence: US)
  Receive Date: 20210524
  Receipt Date: 20210524
  Transmission Date: 20210717
  Serious: No
  Sender: FDA-Public Use
  Company Number: None

PATIENT
  Age: 65 Year
  Sex: Female

DRUGS (1)
  1. ENBREL [Suspect]
     Active Substance: ETANERCEPT
     Indication: RHEUMATOID ARTHRITIS
     Dosage: AS DIRECTED??OCTOBER? INTERRUPTED
     Route: 058

REACTIONS (4)
  - Urinary tract infection [None]
  - Arthralgia [None]
  - Muscle spasms [None]
  - Balance disorder [None]
